FAERS Safety Report 9304822 (Version 1)
Quarter: 2013Q2

REPORT INFORMATION
  Report Type: Report from Study
  Country: ZA (occurrence: ZA)
  Receive Date: 20130523
  Receipt Date: 20130523
  Transmission Date: 20140414
  Serious: Yes (Hospitalization)
  Sender: FDA-Public Use
  Company Number: ZA-ROCHE-1227078

PATIENT
  Age: 57 Year
  Sex: Female

DRUGS (3)
  1. MIRCERA [Suspect]
     Indication: ANAEMIA
     Route: 065
     Dates: start: 20120405
  2. MIRCERA [Suspect]
     Route: 065
     Dates: start: 20121108
  3. MIRCERA [Suspect]
     Route: 065
     Dates: start: 201302

REACTIONS (1)
  - Pneumonia [Unknown]
